FAERS Safety Report 11190966 (Version 1)
Quarter: 2015Q2

REPORT INFORMATION
  Report Type: Spontaneous
  Country: CA (occurrence: CA)
  Receive Date: 20150615
  Receipt Date: 20150615
  Transmission Date: 20150821
  Serious: Yes (Death, Hospitalization)
  Sender: FDA-Public Use
  Company Number: CA-TALECRIS-GTI003230

PATIENT
  Age: 56 Year
  Sex: Male

DRUGS (17)
  1. GAMUNEX [Suspect]
     Active Substance: HUMAN IMMUNOGLOBULIN G
     Indication: STEM CELL TRANSPLANT
     Route: 042
     Dates: start: 20121205
  2. ALENDRONATE [Concomitant]
     Active Substance: ALENDRONATE SODIUM
  3. TYLENOL /00435101/ [Concomitant]
  4. VENTOLIN [Concomitant]
     Active Substance: ALBUTEROL SULFATE
  5. FRAGMIN [Concomitant]
     Active Substance: DALTEPARIN SODIUM
  6. IMOVANE [Concomitant]
     Active Substance: ZOPICLONE
  7. HALDOL [Concomitant]
     Active Substance: HALOPERIDOL
  8. GAMUNEX [Suspect]
     Active Substance: HUMAN IMMUNOGLOBULIN G
     Indication: IMMUNODEFICIENCY
     Route: 042
     Dates: start: 20150405, end: 20150405
  9. VITAMIN D /00107901/ [Concomitant]
     Active Substance: ERGOCALCIFEROL
  10. POSACONAZOLE [Concomitant]
     Active Substance: POSACONAZOLE
  11. GAMUNEX [Suspect]
     Active Substance: HUMAN IMMUNOGLOBULIN G
     Indication: STEM CELL TRANSPLANT
     Route: 042
     Dates: start: 20150405, end: 20150405
  12. PREDNISONE. [Concomitant]
     Active Substance: PREDNISONE
  13. LASIX [Concomitant]
     Active Substance: FUROSEMIDE
  14. GAMUNEX [Suspect]
     Active Substance: HUMAN IMMUNOGLOBULIN G
     Indication: IMMUNODEFICIENCY
     Route: 042
     Dates: start: 20121205
  15. ZOFRAN /00955301/ [Concomitant]
     Active Substance: ONDANSETRON HYDROCHLORIDE
  16. BISACODYL. [Concomitant]
     Active Substance: BISACODYL
  17. SIROLIMUS. [Concomitant]
     Active Substance: SIROLIMUS

REACTIONS (4)
  - Haemoglobin decreased [Fatal]
  - Anti A antibody positive [Fatal]
  - Haemolytic anaemia [Fatal]
  - Coombs direct test positive [Fatal]

NARRATIVE: CASE EVENT DATE: 20150406
